FAERS Safety Report 5274037-7 (Version None)
Quarter: 2007Q1

REPORT INFORMATION
  Report Type: 
  Country: None (occurrence: None)
  Receive Date: 20070323
  Receipt Date: 20070316
  Transmission Date: 20070707
  Serious: Yes (Hospitalization)
  Sender: FDA-Public Use
  Company Number: BR-GILEAD-2007-0011681

PATIENT
  Sex: Male

DRUGS (8)
  1. VIREAD [Suspect]
     Indication: HIV INFECTION
     Route: 048
     Dates: start: 20060901, end: 20070201
  2. ATAZANAVIR SULFATE [Suspect]
     Indication: HIV INFECTION
     Route: 048
     Dates: start: 20060901, end: 20070201
  3. ATAZANAVIR SULFATE [Suspect]
     Dates: start: 20070228
  4. RITONAVIR [Concomitant]
     Indication: HIV INFECTION
     Route: 048
     Dates: start: 20060901, end: 20070201
  5. RITONAVIR [Concomitant]
     Dates: start: 20070228
  6. EPIVIR [Concomitant]
     Indication: HIV INFECTION
     Route: 048
     Dates: start: 20060901, end: 20070201
  7. NEVIRAPINE [Concomitant]
     Dates: start: 20070228
  8. BUDENOSIDE [Concomitant]
     Indication: SINUS DISORDER
     Route: 055

REACTIONS (2)
  - RENAL FAILURE ACUTE [None]
  - RHABDOMYOLYSIS [None]
